FAERS Safety Report 9944300 (Version 1)
Quarter: 2014Q1

REPORT INFORMATION
  Report Type: Report from Study
  Country: US (occurrence: US)
  Receive Date: 20140303
  Receipt Date: 20140303
  Transmission Date: 20141002
  Serious: No
  Sender: FDA-Public Use
  Company Number: US-ABBVIE-13P-163-1055836-00

PATIENT
  Age: 22 Year
  Sex: Female

DRUGS (14)
  1. HUMIRA [Suspect]
     Indication: CROHN^S DISEASE
     Dates: start: 201208
  2. HUMIRA [Suspect]
     Dosage: EVERY WEEK
  3. PREDNISONE [Concomitant]
     Indication: SYSTEMIC LUPUS ERYTHEMATOSUS
     Dosage: 5 MG DAILY
  4. IMURAN [Concomitant]
     Indication: SYSTEMIC LUPUS ERYTHEMATOSUS
     Dosage: 50 MG DAILY
  5. PREVACID [Concomitant]
     Indication: DYSPEPSIA
     Dosage: 30 MG DAILY
  6. VITAMIN D [Concomitant]
     Indication: VITAMIN D DEFICIENCY
  7. CALCIUM CITRATE [Concomitant]
     Indication: CALCIUM DEFICIENCY
     Dosage: WITH MEALS
  8. CYMBALTA [Concomitant]
     Indication: OSTEOPOROSIS
     Dosage: 30 MG DAILY
  9. CYMBALTA [Concomitant]
     Indication: PAIN PROPHYLAXIS
  10. OXYCODONE [Concomitant]
     Indication: PAIN
  11. ONDANSETRON [Concomitant]
     Indication: NAUSEA
  12. BENADRYL [Concomitant]
     Indication: PRODUCT USED FOR UNKNOWN INDICATION
     Dosage: PRIOR TO CODEINE
  13. ACTONEL [Concomitant]
     Indication: VITAMIN SUPPLEMENTATION
  14. CODEINE [Concomitant]
     Indication: PRODUCT USED FOR UNKNOWN INDICATION

REACTIONS (1)
  - Diarrhoea [Recovering/Resolving]
